FAERS Safety Report 18779625 (Version 1)
Quarter: 2021Q1

REPORT INFORMATION
  Report Type: Spontaneous
  Country: US (occurrence: US)
  Receive Date: 20210125
  Receipt Date: 20210125
  Transmission Date: 20210419
  Serious: Yes (Other)
  Sender: FDA-Public Use
  Company Number: US-GE HEALTHCARE LIFE SCIENCES-2021CSU000219

PATIENT
  Age: 66 Year
  Sex: Female

DRUGS (4)
  1. NORMAL SALINE [Concomitant]
     Active Substance: SODIUM CHLORIDE
     Indication: CHEST PAIN
     Dosage: 9 ML, SINGLE
  2. OPTISON [Suspect]
     Active Substance: ALBUMIN HUMAN
     Indication: CHEST PAIN
     Dosage: 1 ML, SINGLE
     Route: 065
  3. OPTISON [Suspect]
     Active Substance: ALBUMIN HUMAN
     Indication: ECHOCARDIOGRAM
  4. NORMAL SALINE [Concomitant]
     Active Substance: SODIUM CHLORIDE
     Indication: ECHOCARDIOGRAM

REACTIONS (4)
  - Dysphagia [Recovered/Resolved]
  - Angioedema [Recovered/Resolved]
  - Urticaria [Recovered/Resolved]
  - Dyspnoea [Recovered/Resolved]
